FAERS Safety Report 4387824-4 (Version None)
Quarter: 2004Q2

REPORT INFORMATION
  Report Type: 
  Country: None (occurrence: None)
  Receive Date: 20040630
  Receipt Date: 20040618
  Transmission Date: 20050107
  Serious: Yes (Hospitalization, Other)
  Sender: FDA-Public Use
  Company Number: PHNU2004DE02155

PATIENT
  Sex: Male

DRUGS (1)
  1. NEORAL [Suspect]
     Indication: RENAL TRANSPLANT
     Dosage: 200MG/DAY
     Route: 048
     Dates: start: 20010420, end: 20040130

REACTIONS (5)
  - AMPUTATION [None]
  - BIOPSY KIDNEY [None]
  - GANGRENE [None]
  - LEG AMPUTATION [None]
  - PERIPHERAL OCCLUSIVE DISEASE [None]
